FAERS Safety Report 13454148 (Version 1)
Quarter: 2017Q2

REPORT INFORMATION
  Report Type: Spontaneous
  Country: FR (occurrence: FR)
  Receive Date: 20170418
  Receipt Date: 20170418
  Transmission Date: 20170830
  Serious: Yes (Life-Threatening, Hospitalization)
  Sender: FDA-Public Use
  Company Number: FR-TEVA-760089ROM

PATIENT
  Age: 31 Year
  Sex: Male

DRUGS (4)
  1. LITHIUM. [Suspect]
     Active Substance: LITHIUM
     Indication: OVERDOSE
     Dosage: LOOKED LIKE HE INGESTED ALL HIS TABLETS THAT CORRESPONDED TO 15 DAYS OF TREATMENT
     Route: 048
  2. ARIPIPRAZOLE. [Suspect]
     Active Substance: ARIPIPRAZOLE
     Indication: BIPOLAR DISORDER
     Dosage: 30 MILLIGRAM DAILY; 30 MG/DAY
     Route: 048
  3. LITHIUM. [Suspect]
     Active Substance: LITHIUM
     Indication: BIPOLAR DISORDER
     Dosage: 800 MILLIGRAM DAILY; 800 MG/DAY
     Route: 048
  4. ARIPIPRAZOLE. [Suspect]
     Active Substance: ARIPIPRAZOLE
     Indication: OVERDOSE
     Dosage: LOOKED LIKE HE INGESTED ALL HIS TABLETS THAT CORRESPONDED TO 15 DAYS OF TREATMENT
     Route: 048

REACTIONS (7)
  - Intentional overdose [Not Recovered/Not Resolved]
  - Central nervous system lesion [Not Recovered/Not Resolved]
  - Pseudobulbar palsy [Not Recovered/Not Resolved]
  - Suicide attempt [Not Recovered/Not Resolved]
  - Cerebellar syndrome [Not Recovered/Not Resolved]
  - Toxicity to various agents [Not Recovered/Not Resolved]
  - Psychomotor hyperactivity [Not Recovered/Not Resolved]

NARRATIVE: CASE EVENT DATE: 2015
